FAERS Safety Report 15384983 (Version 2)
Quarter: 2018Q3

REPORT INFORMATION
  Report Type: Spontaneous
  Country: US (occurrence: US)
  Receive Date: 20180914
  Receipt Date: 20180918
  Transmission Date: 20181010
  Serious: Yes (Hospitalization)
  Sender: FDA-Public Use
  Company Number: US-PFIZER INC-2018369200

PATIENT
  Age: 65 Year
  Sex: Female

DRUGS (2)
  1. SUTENT [Suspect]
     Active Substance: SUNITINIB MALATE
     Indication: HEPATIC ANGIOSARCOMA
  2. SUTENT [Suspect]
     Active Substance: SUNITINIB MALATE
     Indication: MALIGNANT CONNECTIVE TISSUE NEOPLASM
     Dosage: 25 MG, DAILY
     Route: 048
     Dates: start: 20180817, end: 20180910

REACTIONS (3)
  - Neoplasm progression [Unknown]
  - Product use in unapproved indication [Unknown]
  - Pyrexia [Unknown]

NARRATIVE: CASE EVENT DATE: 2018
